FAERS Safety Report 25332562 (Version 1)
Quarter: 2025Q2

REPORT INFORMATION
  Report Type: Spontaneous
  Country: PK (occurrence: PK)
  Receive Date: 20250519
  Receipt Date: 20250519
  Transmission Date: 20250717
  Serious: Yes (Life-Threatening, Hospitalization, Other)
  Sender: CARLSBAD TECHNOLOGY, INC.
  Company Number: PK-CARLSBAD-2025PKCTILIT00005

PATIENT
  Age: 37 Year
  Sex: Male

DRUGS (1)
  1. DICLOFENAC [Suspect]
     Active Substance: DICLOFENAC
     Indication: Musculoskeletal pain
     Route: 030

REACTIONS (4)
  - Compartment syndrome [Recovering/Resolving]
  - Gas gangrene [Recovering/Resolving]
  - Muscle necrosis [Recovering/Resolving]
  - Incorrect product formulation administered [Unknown]
